FAERS Safety Report 5494827-5 (Version None)
Quarter: 2007Q4

REPORT INFORMATION
  Report Type: 
  Country: None (occurrence: None)
  Receive Date: 20071024
  Receipt Date: 20071023
  Transmission Date: 20080405
  Serious: Yes (Death)
  Sender: FDA-Public Use
  Company Number: JP-SANOFI-SYNTHELABO-F01200701352

PATIENT
  Sex: Male

DRUGS (4)
  1. LEUCOVORIN CALCIUM [Suspect]
     Route: 041
  2. FLUOROURACIL [Suspect]
     Route: 041
  3. BEVACIZUMAB [Suspect]
     Route: 041
     Dates: start: 20071005, end: 20071005
  4. OXALIPLATIN [Suspect]
     Route: 041

REACTIONS (1)
  - GASTROINTESTINAL PERFORATION [None]
